FAERS Safety Report 14584094 (Version 1)
Quarter: 2018Q1

REPORT INFORMATION
  Report Type: Spontaneous
  Country: US (occurrence: US)
  Receive Date: 20180228
  Receipt Date: 20180228
  Transmission Date: 20180509
  Serious: Yes (Other)
  Sender: FDA-Public Use
  Company Number: US-BAUSCH-BL-2018-004970

PATIENT
  Age: 15 Year
  Sex: Female

DRUGS (5)
  1. BLUE PEEL RADIANCE [Suspect]
     Active Substance: COSMETICS
     Indication: SKIN COSMETIC PROCEDURE
     Dosage: SINGLE
     Route: 061
     Dates: start: 20180208, end: 20180208
  2. PREDNISONE. [Suspect]
     Active Substance: PREDNISONE
     Indication: ERYTHEMA
  3. PREDNISONE. [Suspect]
     Active Substance: PREDNISONE
     Indication: SKIN IRRITATION
     Route: 065
     Dates: start: 201802
  4. PREDNISONE. [Suspect]
     Active Substance: PREDNISONE
     Indication: ERYTHEMA
  5. PREDNISONE. [Suspect]
     Active Substance: PREDNISONE
     Indication: SKIN IRRITATION
     Route: 065
     Dates: start: 201802

REACTIONS (4)
  - Erythema [None]
  - Autoimmune disorder [Unknown]
  - Application site irritation [None]
  - Skin irritation [None]

NARRATIVE: CASE EVENT DATE: 201802
